FAERS Safety Report 7134215-9 (Version None)
Quarter: 2010Q4

REPORT INFORMATION
  Report Type: 
  Country: None (occurrence: None)
  Receive Date: 20101203
  Receipt Date: 20101117
  Transmission Date: 20110411
  Serious: Yes (Hospitalization)
  Sender: FDA-Public Use
  Company Number: AT-SANOFI-AVENTIS-2010SA069766

PATIENT
  Age: 59 Year
  Sex: Female

DRUGS (10)
  1. MULTAQ [Suspect]
     Route: 048
     Dates: start: 20101110, end: 20101116
  2. CARVEDILOL [Concomitant]
     Route: 048
  3. RILMENIDINE [Concomitant]
     Route: 048
  4. ENALAPRIL MALEATE [Concomitant]
     Route: 048
  5. DIOVAN HCT [Concomitant]
     Route: 048
  6. VALSARTAN [Concomitant]
     Route: 048
  7. ZANIDIP [Concomitant]
     Route: 048
  8. SIMVASTATIN [Concomitant]
     Route: 048
  9. LOVENOX [Concomitant]
     Dosage: 100 MG + 80 MG
     Route: 058
  10. ACE INHIBITOR NOS [Concomitant]

REACTIONS (1)
  - HYPERKALAEMIA [None]
